FAERS Safety Report 4514941-8 (Version None)
Quarter: 2004Q4

REPORT INFORMATION
  Report Type: 
  Country: None (occurrence: None)
  Receive Date: 20041201
  Receipt Date: 20041119
  Transmission Date: 20050328
  Serious: Yes (Hospitalization)
  Sender: FDA-Public Use
  Company Number: 200414366FR

PATIENT
  Age: 38 Year
  Sex: Male

DRUGS (7)
  1. LOVENOX [Suspect]
     Route: 058
     Dates: start: 20041020, end: 20041029
  2. TOPALGIC [Suspect]
     Route: 042
     Dates: start: 20041020, end: 20041027
  3. PROFENID ^PHARMA RHODIA^ [Suspect]
     Route: 042
     Dates: start: 20041025, end: 20041029
  4. OMEPRAZOLE [Suspect]
     Route: 048
     Dates: start: 20041025, end: 20041027
  5. SKENAN [Suspect]
     Route: 048
     Dates: start: 20041020, end: 20041026
  6. KALEORID [Concomitant]
     Route: 048
     Dates: start: 20041027, end: 20041029
  7. ZYRTEC [Concomitant]
     Route: 048
     Dates: start: 20041026, end: 20041027

REACTIONS (8)
  - ALANINE AMINOTRANSFERASE INCREASED [None]
  - ASPARTATE AMINOTRANSFERASE INCREASED [None]
  - BLOOD ALKALINE PHOSPHATASE INCREASED [None]
  - C-REACTIVE PROTEIN INCREASED [None]
  - CHOLESTASIS [None]
  - GAMMA-GLUTAMYLTRANSFERASE INCREASED [None]
  - HYPOKALAEMIA [None]
  - PRURITUS [None]
